FAERS Safety Report 18870840 (Version 2)
Quarter: 2021Q1

REPORT INFORMATION
  Report Type: Spontaneous
  Country: US (occurrence: US)
  Receive Date: 20210210
  Receipt Date: 20210219
  Transmission Date: 20210420
  Serious: Yes (Life-Threatening, Hospitalization)
  Sender: FDA-Public Use
  Company Number: US-DRREDDYS-USA/USA/21/0131688

PATIENT
  Age: 79 Year
  Sex: Female

DRUGS (6)
  1. HYDROCODONE [Suspect]
     Active Substance: HYDROCODONE
     Indication: PERIPHERAL SENSORIMOTOR NEUROPATHY
  2. GABAPENTIN. [Suspect]
     Active Substance: GABAPENTIN
     Indication: PERIPHERAL SENSORIMOTOR NEUROPATHY
  3. TIZANIDINE HYDROCHLORIDE. [Suspect]
     Active Substance: TIZANIDINE HYDROCHLORIDE
     Indication: PERIPHERAL SENSORIMOTOR NEUROPATHY
  4. PREGABALIN. [Suspect]
     Active Substance: PREGABALIN
     Indication: PERIPHERAL SENSORIMOTOR NEUROPATHY
  5. AMITRIPTYLINE [Suspect]
     Active Substance: AMITRIPTYLINE
     Indication: PERIPHERAL SENSORIMOTOR NEUROPATHY
  6. KETAMINE [Suspect]
     Active Substance: KETAMINE
     Indication: PERIPHERAL SENSORIMOTOR NEUROPATHY

REACTIONS (1)
  - Treatment failure [Unknown]
